FAERS Safety Report 14705242 (Version 1)
Quarter: 2018Q2

REPORT INFORMATION
  Report Type: Spontaneous
  Country: IN (occurrence: IN)
  Receive Date: 20180402
  Receipt Date: 20180402
  Transmission Date: 20180711
  Serious: Yes (Hospitalization)
  Sender: FDA-Public Use
  Company Number: IN-MYLANLABS-2018M1020218

PATIENT
  Age: 18 Year
  Sex: Female

DRUGS (1)
  1. AMLODIPINE [Suspect]
     Active Substance: AMLODIPINE BESYLATE
     Indication: PRODUCT USED FOR UNKNOWN INDICATION
     Route: 048

REACTIONS (6)
  - Suicide attempt [Recovered/Resolved]
  - Tachypnoea [Recovered/Resolved]
  - Toxicity to various agents [Recovered/Resolved]
  - Urine output decreased [Recovered/Resolved]
  - Intentional overdose [Recovered/Resolved]
  - Circulatory collapse [Recovered/Resolved]
